FAERS Safety Report 5314357-0 (Version None)
Quarter: 2007Q1

REPORT INFORMATION
  Report Type: 
  Country: None (occurrence: None)
  Receive Date: 20070130
  Receipt Date: 20060925
  Transmission Date: 20070707
  Serious: Yes (Hospitalization)
  Sender: FDA-Public Use
  Company Number: 148055USA

PATIENT
  Age: 46 Year
  Sex: Female

DRUGS (1)
  1. COPAXONE [Suspect]
     Indication: MULTIPLE SCLEROSIS
     Dosage: 1 IN 1 D, SUBCUTANEOUS
     Route: 058
     Dates: start: 20020101, end: 20060801

REACTIONS (1)
  - DYSMENORRHOEA [None]
